FAERS Safety Report 8952855 (Version 1)
Quarter: 2012Q4

REPORT INFORMATION
  Report Type: 
  Country: CN (occurrence: CN)
  Receive Date: 20121203
  Receipt Date: 20121203
  Transmission Date: 20130627
  Serious: Yes (Other)
  Sender: FDA-Public Use
  Company Number: PHHY2012CN108325

PATIENT

DRUGS (1)
  1. TEGRETOL [Suspect]
     Indication: PAIN IN EXTREMITY
     Dosage: 0.1 g, TID
     Route: 048
     Dates: start: 20090430, end: 20090503

REACTIONS (7)
  - Syncope [Recovering/Resolving]
  - Heart rate decreased [Recovered/Resolved]
  - Palpitations [Unknown]
  - Electrocardiogram abnormal [Unknown]
  - Eye movement disorder [Unknown]
  - Somnolence [Unknown]
  - Blood pressure increased [Unknown]
